FAERS Safety Report 7194389-0 (Version None)
Quarter: 2010Q4

REPORT INFORMATION
  Report Type: 
  Country: None (occurrence: None)
  Receive Date: 20101124
  Receipt Date: 20101005
  Transmission Date: 20110411
  Serious: Yes (Hospitalization, Other)
  Sender: FDA-Public Use
  Company Number: 017074

PATIENT
  Age: 55 Year
  Sex: Female

DRUGS (5)
  1. KEPPRA [Suspect]
     Indication: CONVULSION
     Dosage: (1500 MG BID ORAL)
     Route: 048
     Dates: start: 20100501
  2. LACOSAMIDE [Suspect]
     Indication: CONVULSION
     Dosage: (200 MG BID ORAL) ; (100 MG BID ORAL) ; (50 MG BID ORAL) ; (200 MG BID ORAL)
     Route: 048
  3. TEMODAR [Suspect]
     Dosage: (JULY TO PRESENT ORAL)
     Route: 048
  4. DECADRON [Concomitant]
  5. LEVOTHYROXINE SODIUM [Concomitant]

REACTIONS (3)
  - CONVULSION [None]
  - DRUG RASH WITH EOSINOPHILIA AND SYSTEMIC SYMPTOMS [None]
  - LIVER FUNCTION TEST ABNORMAL [None]
